FAERS Safety Report 12153698 (Version 2)
Quarter: 2016Q2

REPORT INFORMATION
  Report Type: Spontaneous
  Country: JP (occurrence: JP)
  Receive Date: 20160307
  Receipt Date: 20160406
  Transmission Date: 20160815
  Serious: Yes (Other)
  Sender: FDA-Public Use
  Company Number: JP-ROCHE-1721562

PATIENT
  Age: 79 Year
  Sex: Male

DRUGS (6)
  1. UNIPHYL [Concomitant]
     Active Substance: THEOPHYLLINE ANHYDROUS
  2. PREDONINE [Concomitant]
     Active Substance: PREDNISOLONE\PREDNISOLONE ACETATE\PREDNISOLONE SODIUM SUCCINATE
  3. ONON [Concomitant]
     Active Substance: PRANLUKAST
  4. XOLAIR [Suspect]
     Active Substance: OMALIZUMAB
     Indication: ASTHMA
     Route: 058
     Dates: start: 20140724, end: 20160204
  5. FLUTIFORM [Concomitant]
     Active Substance: FLUTICASONE PROPIONATE\FORMOTEROL FUMARATE
     Route: 065
  6. MUCODYNE [Concomitant]
     Active Substance: CARBOCYSTEINE

REACTIONS (2)
  - Granulomatosis with polyangiitis [Recovering/Resolving]
  - Disease progression [Recovering/Resolving]
